FAERS Safety Report 21091249 (Version 1)
Quarter: 2022Q3

REPORT INFORMATION
  Report Type: Spontaneous
  Country: GB (occurrence: GB)
  Receive Date: 20220716
  Receipt Date: 20220716
  Transmission Date: 20221027
  Serious: Yes (Other)
  Sender: FDA-Public Use
  Company Number: None

PATIENT
  Sex: Female

DRUGS (1)
  1. EVEROLIMUS [Suspect]
     Active Substance: EVEROLIMUS
     Indication: Product used for unknown indication
     Route: 065
     Dates: start: 201912

REACTIONS (3)
  - Abnormal loss of weight [Unknown]
  - Swelling of eyelid [Unknown]
  - Blister [Unknown]

NARRATIVE: CASE EVENT DATE: 20220628
